FAERS Safety Report 19118466 (Version 1)
Quarter: 2021Q2

REPORT INFORMATION
  Report Type: Other
  Country: DE (occurrence: DE)
  Receive Date: 20210409
  Receipt Date: 20210409
  Transmission Date: 20210717
  Serious: Yes (Other)
  Sender: FDA-Public Use
  Company Number: DE-INVATECH-000057

PATIENT
  Sex: Male

DRUGS (4)
  1. SALBUTAMOL/SALBUTAMOL SULFATE [Concomitant]
     Active Substance: ALBUTEROL
     Indication: PRODUCT USED FOR UNKNOWN INDICATION
  2. FORMOTEROL W/BUDESONIDE [Concomitant]
     Active Substance: BUDESONIDE\FORMOTEROL
     Indication: ASTHMA
     Dosage: 4.5/160 MICROGRAMS 2 X 4 STROKE/DAY
  3. THEOPHYLLINE [Concomitant]
     Active Substance: THEOPHYLLINE ANHYDROUS
     Indication: ASTHMA
     Dosage: 2 X 375 MG/DAY
  4. VALPROIC ACID. [Suspect]
     Active Substance: VALPROIC ACID
     Indication: GENERALISED TONIC-CLONIC SEIZURE
     Dosage: 1000 MG/DAY

REACTIONS (4)
  - Pulmonary eosinophilia [Recovered/Resolved]
  - Eosinophilic granulomatosis with polyangiitis [Recovered/Resolved]
  - Product dose omission issue [Unknown]
  - Generalised tonic-clonic seizure [Recovered/Resolved]
